FAERS Safety Report 5131027-2 (Version None)
Quarter: 2006Q4

REPORT INFORMATION
  Report Type: 
  Country: None (occurrence: None)
  Receive Date: 20061019
  Receipt Date: 20061006
  Transmission Date: 20070319
  Serious: Yes (Other)
  Sender: FDA-Public Use
  Company Number: GB-BOEHRINGER INGELHEIM PHARMACEUTICALS, INC.-2006-DE-05292GD

PATIENT
  Sex: Male

DRUGS (2)
  1. NEVIRAPINE [Suspect]
     Indication: HIV INFECTION
  2. COMBIVIR [Suspect]
     Indication: HIV INFECTION

REACTIONS (2)
  - DRUG RESISTANCE [None]
  - VIRAL MUTATION IDENTIFIED [None]
